FAERS Safety Report 18213626 (Version 1)
Quarter: 2020Q3

REPORT INFORMATION
  Report Type: Spontaneous
  Country: US (occurrence: US)
  Receive Date: 20200831
  Receipt Date: 20200831
  Transmission Date: 20201103
  Serious: No
  Sender: FDA-Public Use
  Company Number: None

PATIENT
  Age: 70 Year
  Sex: Male
  Weight: 86.18 kg

DRUGS (2)
  1. INSULIN (INSULIN, GLARGINE, HUMAN 100 UNT/ML INJ) [Suspect]
     Active Substance: INSULIN GLARGINE
     Indication: DIABETES MELLITUS
     Dosage: ?          OTHER DOSE:56 UNITS;OTHER FREQUENCY:AM;?
     Route: 058
     Dates: start: 20200109
  2. SEMAGLUTIDE (SEMAGLUTIDE 0.5MG/0.375ML INJ, SOLN, PEN 1.5ML) [Suspect]
     Active Substance: SEMAGLUTIDE
     Indication: DIABETES MELLITUS
     Route: 058
     Dates: start: 20200710, end: 20200810

REACTIONS (4)
  - Dizziness [None]
  - Diarrhoea [None]
  - Asthenia [None]
  - Hyperglycaemia [None]

NARRATIVE: CASE EVENT DATE: 20200810
